FAERS Safety Report 24967979 (Version 3)
Quarter: 2025Q3

REPORT INFORMATION
  Report Type: Spontaneous
  Country: EU (occurrence: EU)
  Receive Date: 20250214
  Receipt Date: 20250802
  Transmission Date: 20251021
  Serious: Yes (Hospitalization, Other)
  Sender: ALEXION PHARMACEUTICALS
  Company Number: EU-JNJFOC-20250181312

PATIENT
  Age: 45 Year
  Sex: Male

DRUGS (2)
  1. TAGRISSO [Suspect]
     Active Substance: OSIMERTINIB
     Indication: Lung neoplasm malignant
     Route: 065
  2. RYBREVANT [Suspect]
     Active Substance: AMIVANTAMAB-VMJW
     Indication: Lung neoplasm malignant
     Route: 065

REACTIONS (10)
  - Pneumonia [Unknown]
  - Thrombosis [Unknown]
  - Pulmonary embolism [Unknown]
  - Lung cancer metastatic [Unknown]
  - Hypersensitivity [Unknown]
  - Pain in extremity [Unknown]
  - Ingrowing nail [Unknown]
  - Rash [Not Recovered/Not Resolved]
  - Wound [Unknown]
  - Off label use [Unknown]
